FAERS Safety Report 8461491-2 (Version None)
Quarter: 2012Q2

REPORT INFORMATION
  Report Type: 
  Country: None (occurrence: None)
  Receive Date: 20120625
  Receipt Date: 20120617
  Transmission Date: 20120825
  Serious: Yes (Hospitalization)
  Sender: FDA-Public Use
  Company Number: IL-B.I. PHARMACEUTICALS,INC./RIDGEFIELD-2012-AP-00423RI

PATIENT
  Age: 62 Year
  Sex: Male

DRUGS (7)
  1. RAMIPRIL [Concomitant]
  2. CARVEDIXON [Concomitant]
  3. FUROSEMIDE [Concomitant]
  4. CRESTOR [Concomitant]
  5. ASPIRIN [Concomitant]
  6. PRADAXA [Suspect]
     Indication: ATRIAL FIBRILLATION
     Dosage: 220 MG
     Route: 048
     Dates: start: 20120301, end: 20120401
  7. PRADAXA [Suspect]
     Indication: CEREBROVASCULAR ACCIDENT PROPHYLAXIS

REACTIONS (5)
  - UROSEPSIS [None]
  - PYREXIA [None]
  - GINGIVAL BLEEDING [None]
  - RENAL FAILURE ACUTE [None]
  - RENAL IMPAIRMENT [None]
